FAERS Safety Report 23730598 (Version 1)
Quarter: 2024Q2

REPORT INFORMATION
  Report Type: Spontaneous
  Country: NL (occurrence: NL)
  Receive Date: 20240411
  Receipt Date: 20240411
  Transmission Date: 20240715
  Serious: Yes (Hospitalization)
  Sender: FDA-Public Use
  Company Number: None

PATIENT
  Age: 42 Year
  Sex: Female
  Weight: 80 kg

DRUGS (2)
  1. TERIFLUNOMIDE [Suspect]
     Active Substance: TERIFLUNOMIDE
     Indication: Multiple sclerosis
     Dosage: 1X DAILY 1 PIECE
     Dates: start: 20240120, end: 20240222
  2. COTRIMOXAZOLE [Suspect]
     Active Substance: SULFAMETHOXAZOLE\TRIMETHOPRIM
     Indication: Respiratory tract infection
     Dosage: 2X DAILY,  960 TABLET 160/800 MG
     Dates: start: 20240219, end: 20240222

REACTIONS (3)
  - Hepatic enzyme increased [Recovering/Resolving]
  - Product substitution issue [Unknown]
  - Hyperpyrexia [Recovering/Resolving]
